FAERS Safety Report 6032271-2 (Version None)
Quarter: 2009Q1

REPORT INFORMATION
  Report Type: 
  Country: None (occurrence: None)
  Receive Date: 20090107
  Receipt Date: 20081231
  Transmission Date: 20090719
  Serious: Yes (Hospitalization)
  Sender: FDA-Public Use
  Company Number: 2008SP024738

PATIENT
  Age: 47 Year
  Sex: Female

DRUGS (2)
  1. RIBAVIRIN [Suspect]
     Indication: HEPATITIS C
     Dosage: PO
     Route: 048
     Dates: start: 20000101
  2. INTERFERON [Suspect]
     Indication: HEPATITIS C
     Dosage: QW

REACTIONS (7)
  - ANOREXIA [None]
  - DEHYDRATION [None]
  - GAIT DISTURBANCE [None]
  - MALAISE [None]
  - NAUSEA [None]
  - PAIN [None]
  - RED BLOOD CELL COUNT DECREASED [None]
